FAERS Safety Report 22281342 (Version 1)
Quarter: 2023Q2

REPORT INFORMATION
  Report Type: Spontaneous
  Country: US (occurrence: US)
  Receive Date: 20230504
  Receipt Date: 20230504
  Transmission Date: 20230722
  Serious: No
  Sender: FDA-Public Use
  Company Number: US-Accord-307760

PATIENT
  Sex: Male

DRUGS (1)
  1. FLUOROURACIL [Suspect]
     Active Substance: FLUOROURACIL
     Indication: Anogenital warts
     Dosage: STRENGTH: 5%, APPLY TO EFFECTED AREA TWICE DAILY
     Route: 061
     Dates: start: 202303, end: 202304

REACTIONS (3)
  - Burning sensation [Not Recovered/Not Resolved]
  - Application site discharge [Not Recovered/Not Resolved]
  - Off label use [Unknown]
